FAERS Safety Report 6024087-8 (Version None)
Quarter: 2008Q4

REPORT INFORMATION
  Report Type: 
  Country: None (occurrence: None)
  Receive Date: 20081224
  Receipt Date: 20081211
  Transmission Date: 20090506
  Serious: Yes (Hospitalization)
  Sender: FDA-Public Use
  Company Number: 2008013388

PATIENT
  Age: 37 Year
  Sex: Male

DRUGS (3)
  1. CETIRIZINE HCL [Suspect]
     Indication: RHINORRHOEA
     Dosage: 10 MG, ORAL
     Route: 048
     Dates: start: 20080508, end: 20080510
  2. CARBOCISTEINE CARBOCISTEINE) [Concomitant]
  3. DRUG, UNSPECIFIED (DRUG, UNSPECIFIED [Concomitant]

REACTIONS (2)
  - DEPRESSION [None]
  - SUICIDAL IDEATION [None]
